FAERS Safety Report 21821016 (Version 1)
Quarter: 2023Q1

REPORT INFORMATION
  Report Type: Report from Study
  Country: CA (occurrence: CA)
  Receive Date: 20230105
  Receipt Date: 20230105
  Transmission Date: 20230418
  Serious: Yes (Hospitalization)
  Sender: FDA-Public Use
  Company Number: CA-SERVIER-S22013390

PATIENT

DRUGS (36)
  1. PEGASPARGASE [Suspect]
     Active Substance: PEGASPARGASE
     Indication: Acute lymphocytic leukaemia
     Dosage: 2500 IU/M2, EVERY TWO WEEKS
     Route: 042
     Dates: start: 20220427, end: 20221213
  2. MERCAPTOPURINE [Suspect]
     Active Substance: MERCAPTOPURINE
     Indication: Acute lymphocytic leukaemia
     Dosage: 50 MG/M2, DAILY, DAY 1-14 OF EVERY 3 WEEKS CYCLE
     Route: 048
     Dates: start: 20220525, end: 20221203
  3. METHOTREXATE [Suspect]
     Active Substance: METHOTREXATE
     Indication: Acute lymphocytic leukaemia
     Dosage: 12 MG, D1
     Route: 037
     Dates: start: 20220802, end: 20220802
  4. METHOTREXATE [Suspect]
     Active Substance: METHOTREXATE
     Dosage: 5000 MG/M2, D1
     Route: 042
     Dates: start: 20220801, end: 20220801
  5. CYTARABINE\HYDROCORTISONE\METHOTREXATE [Suspect]
     Active Substance: CYTARABINE\HYDROCORTISONE\METHOTREXATE
     Indication: Acute lymphocytic leukaemia
     Dosage: 12MG/40MG/15MG; TWICE PER WEEK FOR 2 WEEKS
     Route: 037
     Dates: start: 20220511, end: 20221103
  6. DOXORUBICIN [Suspect]
     Active Substance: DOXORUBICIN
     Indication: Acute lymphocytic leukaemia
     Dosage: 30 MG/M2, DAY 1 OF EVERY 3 WEEKS CYCLE
     Route: 042
     Dates: start: 20220424, end: 20221122
  7. LEUCOVORIN CALCIUM [Suspect]
     Active Substance: LEUCOVORIN CALCIUM
     Indication: Acute lymphocytic leukaemia
     Dosage: 75MG/M2 IV POST-METHOTREXATE HD
     Route: 042
     Dates: start: 20220802, end: 20220802
  8. LEUCOVORIN CALCIUM [Suspect]
     Active Substance: LEUCOVORIN CALCIUM
     Dosage: 15 MG, POST MTX-HD
     Route: 042
     Dates: start: 20220804, end: 20220805
  9. CYCLOPHOSPHAMIDE [Suspect]
     Active Substance: CYCLOPHOSPHAMIDE
     Indication: Acute lymphocytic leukaemia
     Dosage: 1000 MG/M2, DAY 1 OF INDUCTION 1B (PART 1 AND 2)
     Route: 042
     Dates: start: 20220525, end: 20220621
  10. CYCLOPHOSPHAMIDE [Suspect]
     Active Substance: CYCLOPHOSPHAMIDE
     Dosage: 400 MG/M2, DAY 1-5 OF CONSOLIDATION 1B
     Route: 042
     Dates: start: 20220906, end: 20220910
  11. MESNA [Suspect]
     Active Substance: MESNA
     Indication: Acute lymphocytic leukaemia
     Dosage: 200 MG/M2, 15 MIN PRE-CYCLOPHOSPHAMIDE, 4H AND 8H POST CYCLOPHOSPHAMIDE
     Route: 042
     Dates: start: 20220525, end: 20220621
  12. VINCRISTINE [Suspect]
     Active Substance: VINCRISTINE
     Indication: Acute lymphocytic leukaemia
     Dosage: 2 MG/M2, DAY 1 OF EVERY 3-WEEK CYCLE; ONCE PER WEEK DURING INDUCTION 1A
     Route: 042
     Dates: start: 20220424, end: 20221122
  13. DEXAMETHASONE [Suspect]
     Active Substance: DEXAMETHASONE
     Indication: Acute lymphocytic leukaemia
     Dosage: 3 MG/M2, BID, ON DAY 1-7 OF INDUCTION 1A
     Route: 042
     Dates: start: 20220424, end: 20220430
  14. DEXAMETHASONE [Suspect]
     Active Substance: DEXAMETHASONE
     Dosage: 3 MG/M2, DAY 8-32 OF INDUCTION 1A
     Route: 048
     Dates: start: 20220430, end: 20220522
  15. DEXAMETHASONE [Suspect]
     Active Substance: DEXAMETHASONE
     Dosage: 18 MG/M2, BID, ON DAY 1-5 OF CNS
     Route: 048
     Dates: start: 20221024, end: 20221106
  16. DEXAMETHASONE [Suspect]
     Active Substance: DEXAMETHASONE
     Dosage: 9 MG/M2, BID ON DAY 1-5 OF EVERY 3-WEEK CYCLE OF CONSOLIDATION II AND MAINTENANCE
     Route: 048
     Dates: start: 20221122, end: 20221126
  17. CYTARABINE [Suspect]
     Active Substance: CYTARABINE
     Indication: Acute lymphocytic leukaemia
     Dosage: 40 MG, DAY 1 OF INDUCTION 1A/DIAGNOSIS
     Route: 037
     Dates: start: 20220424, end: 20220424
  18. CYTARABINE [Suspect]
     Active Substance: CYTARABINE
     Dosage: 75 MG/M2, DAY 1-4 AND DAY 8-12 OF INDUCTION 1B (PART 1 AND 2)
     Route: 058
     Dates: start: 20220525, end: 20220624
  19. CYTARABINE [Suspect]
     Active Substance: CYTARABINE
     Dosage: 2000 MG/M2, DAY 1-2 CONSOLIDATION IC
     Route: 042
     Dates: start: 20221003, end: 20221004
  20. DEXRAZOXANE [Suspect]
     Active Substance: DEXRAZOXANE
     Indication: Acute lymphocytic leukaemia
     Dosage: 300 MG/M2, DAY 1 OF EVERY 3-WEEKS CYCLE
     Route: 042
     Dates: start: 20220424, end: 20221122
  21. ETOPOSIDE [Suspect]
     Active Substance: ETOPOSIDE
     Indication: Acute lymphocytic leukaemia
     Dosage: 100 MG/M2, DAILY ,CONSOLIDATION 1B DAY 1-5 OF CNS
     Route: 065
     Dates: start: 20220907, end: 20221109
  22. ACETAMINOPHEN [Concomitant]
     Active Substance: ACETAMINOPHEN
     Indication: Product used for unknown indication
     Dosage: UNK
     Route: 065
  23. DIMENHYDRINATE [Concomitant]
     Active Substance: DIMENHYDRINATE
     Indication: Product used for unknown indication
     Dosage: UNK
     Route: 065
  24. GABAPENTIN [Concomitant]
     Active Substance: GABAPENTIN
     Indication: Product used for unknown indication
     Dosage: UNK
     Route: 065
  25. MORPHINE [Concomitant]
     Active Substance: MORPHINE
     Indication: Product used for unknown indication
     Dosage: UNK
     Route: 065
  26. ONDANSETRON [Concomitant]
     Active Substance: ONDANSETRON
     Indication: Product used for unknown indication
     Dosage: UNK
     Route: 065
  27. POTASSIUM CHLORIDE [Concomitant]
     Active Substance: POTASSIUM CHLORIDE
     Indication: Product used for unknown indication
     Dosage: UNK
     Route: 065
  28. NYSTATIN [Concomitant]
     Active Substance: NYSTATIN
     Indication: Product used for unknown indication
     Dosage: UNK
     Route: 065
  29. HYDROCORTISONE [Concomitant]
     Active Substance: HYDROCORTISONE
     Indication: Product used for unknown indication
     Dosage: UNK
     Route: 065
  30. OLANZAPINE [Concomitant]
     Active Substance: OLANZAPINE
     Indication: Product used for unknown indication
     Dosage: UNK
     Route: 065
  31. AMPHOTERICIN B [Concomitant]
     Active Substance: AMPHOTERICIN B
     Indication: Product used for unknown indication
     Dosage: UNK
     Route: 065
  32. ACYCLOVIR [Concomitant]
     Active Substance: ACYCLOVIR
     Indication: Product used for unknown indication
     Dosage: UNK
     Route: 065
  33. FLUCONAZOLE [Concomitant]
     Active Substance: FLUCONAZOLE
     Indication: Product used for unknown indication
     Dosage: UNK
     Route: 065
  34. VANCOMYCIN [Concomitant]
     Active Substance: VANCOMYCIN
     Indication: Product used for unknown indication
     Dosage: UNK
     Route: 065
  35. FILGRASTIM [Concomitant]
     Active Substance: FILGRASTIM
     Indication: Product used for unknown indication
     Dosage: UNK
     Route: 065
  36. LEVOFLOXACIN [Concomitant]
     Active Substance: LEVOFLOXACIN
     Indication: Product used for unknown indication
     Dosage: UNK
     Route: 065

REACTIONS (1)
  - Infective myositis [Unknown]

NARRATIVE: CASE EVENT DATE: 20221220
